FAERS Safety Report 5342078-7 (Version None)
Quarter: 2007Q2

REPORT INFORMATION
  Report Type: 
  Country: None (occurrence: None)
  Receive Date: 20070601
  Receipt Date: 20070523
  Transmission Date: 20071010
  Serious: Yes (Hospitalization)
  Sender: FDA-Public Use
  Company Number: US-KINGPHARMUSA00001-K200700629

PATIENT

DRUGS (20)
  1. ALTACE [Suspect]
     Indication: HYPERTENSION
     Dosage: 5 MG, QD
     Route: 048
     Dates: start: 20060919, end: 20070422
  2. DIAMICRON [Concomitant]
     Indication: DIABETES MELLITUS
     Dosage: 160 MG, UNK
     Route: 048
     Dates: start: 20060919, end: 20060928
  3. DIAMICRON [Concomitant]
     Dosage: 160 MG, UNK
     Route: 048
     Dates: start: 20061011, end: 20070422
  4. GLYCOMIN  /00145301/ [Concomitant]
     Indication: DIABETES MELLITUS
     Dosage: 1000 MG, UNK
     Route: 048
     Dates: start: 20060919, end: 20060928
  5. GLYCOMIN  /00145301/ [Concomitant]
     Dosage: 1000 MG, UNK
     Route: 048
     Dates: start: 20061011, end: 20070422
  6. LIPITOR [Concomitant]
     Indication: HYPERCHOLESTEROLAEMIA
     Dosage: 10 MG, UNK
     Route: 048
     Dates: start: 20060919
  7. FOLIN  /00024201/ [Concomitant]
     Indication: ANAEMIA
     Dosage: 4 MG, UNK
     Route: 048
     Dates: start: 20060919, end: 20060924
  8. CONCOR  /00802602/ [Concomitant]
     Indication: HYPERTENSION
     Dosage: 7.5 MG, UNK
     Route: 048
     Dates: start: 20060919, end: 20061010
  9. PLAVIX [Concomitant]
     Indication: ANTICOAGULANT THERAPY
     Dosage: 75 MG, UNK
     Route: 047
     Dates: start: 20060919
  10. ASPIRIN [Concomitant]
     Indication: ANTICOAGULANT THERAPY
     Dosage: 200 MG, UNK
     Route: 048
     Dates: start: 20060919
  11. AMARYL [Concomitant]
     Indication: DIABETES MELLITUS
     Route: 048
     Dates: start: 20060928, end: 20061009
  12. AMARYL [Concomitant]
     Route: 048
     Dates: start: 20070423
  13. ALDACTONE [Concomitant]
     Indication: DIURETIC THERAPY
     Dosage: 25 MG, UNK
     Route: 048
     Dates: start: 20060929, end: 20061009
  14. ALDACTONE [Concomitant]
     Dosage: 50 MG, UNK
     Route: 048
     Dates: start: 20061006, end: 20070422
  15. ALDACTONE [Concomitant]
     Dosage: 25 MG, UNK
     Route: 048
     Dates: start: 20070423
  16. TOREM  /01036501/ [Concomitant]
     Indication: DIURETIC THERAPY
     Dosage: 5 MG, UNK
     Route: 048
     Dates: start: 20060929, end: 20061029
  17. DIGOXIN [Concomitant]
     Indication: CARDIAC FAILURE
     Dosage: .25 MG, UNK
     Route: 048
     Dates: start: 20061010, end: 20061010
  18. DIGOXIN [Concomitant]
     Dosage: .125 MG, UNK
     Route: 048
     Dates: start: 20061011, end: 20061022
  19. LASIX [Concomitant]
     Indication: DIURETIC THERAPY
     Dosage: 40 MG, UNK
     Route: 048
     Dates: start: 20061011, end: 20070422
  20. LASIX [Concomitant]
     Dosage: 20 MG, UNK
     Route: 048
     Dates: start: 20070423

REACTIONS (4)
  - CARDIAC FAILURE CONGESTIVE [None]
  - DYSPNOEA EXERTIONAL [None]
  - ORTHOPNOEA [None]
  - PULMONARY OEDEMA [None]
